FAERS Safety Report 4363163-2 (Version None)
Quarter: 2004Q2

REPORT INFORMATION
  Report Type: 
  Country: None (occurrence: None)
  Receive Date: 20040524
  Receipt Date: 20030402
  Transmission Date: 20050107
  Serious: No
  Sender: FDA-Public Use
  Company Number: US-GLAXOSMITHKLINE-A0402915A

PATIENT
  Age: 78 Year
  Sex: Female

DRUGS (3)
  1. BACTROBAN [Suspect]
     Indication: NASAL DRYNESS
     Route: 045
     Dates: start: 20030328, end: 20030331
  2. ACTONEL [Concomitant]
  3. ACIPHEX [Concomitant]

REACTIONS (4)
  - GLOSSODYNIA [None]
  - MEDICATION ERROR [None]
  - NASAL DISCOMFORT [None]
  - ORAL DISCOMFORT [None]
